FAERS Safety Report 15649212 (Version 2)
Quarter: 2019Q1

REPORT INFORMATION
  Report Type: Spontaneous
  Country: US (occurrence: US)
  Receive Date: 20181122
  Receipt Date: 20190110
  Transmission Date: 20190417
  Serious: No
  Sender: FDA-Public Use
  Company Number: US-ASTRAZENECA-2018SF45435

PATIENT
  Sex: Female
  Weight: 90.7 kg

DRUGS (4)
  1. PROAIR HFA [Concomitant]
     Active Substance: ALBUTEROL SULFATE
  2. ALBUTEROL. [Concomitant]
     Active Substance: ALBUTEROL
  3. VENTOLIN [Concomitant]
     Active Substance: ALBUTEROL SULFATE
  4. SYMBICORT [Suspect]
     Active Substance: BUDESONIDE\FORMOTEROL FUMARATE DIHYDRATE
     Indication: CHRONIC OBSTRUCTIVE PULMONARY DISEASE
     Dosage: TWO INHALATIONS TWICE DAILY
     Route: 055
     Dates: start: 2016

REACTIONS (10)
  - Incoherent [Unknown]
  - Underdose [Not Recovered/Not Resolved]
  - Intentional product misuse [Unknown]
  - Device use issue [Unknown]
  - Wheezing [Unknown]
  - Product dose omission [Unknown]
  - Fall [Unknown]
  - Feeling hot [Unknown]
  - Dyspnoea [Unknown]
  - Foaming at mouth [Unknown]
